FAERS Safety Report 4293105-X (Version None)
Quarter: 2004Q1

REPORT INFORMATION
  Report Type: 
  Country: None (occurrence: None)
  Receive Date: 20040212
  Receipt Date: 20030108
  Transmission Date: 20041129
  Serious: Yes (Other)
  Sender: FDA-Public Use
  Company Number: US-GLAXOSMITHKLINE-A0391811A

PATIENT
  Age: 38 Year
  Sex: Female

DRUGS (6)
  1. PAXIL [Suspect]
     Indication: DEPRESSION
     Dosage: 10MG AT NIGHT
     Route: 048
  2. CELEBREX [Concomitant]
  3. AUGMENTIN '125' [Concomitant]
  4. H-C TUSSIVE [Concomitant]
  5. LEVAQUIN [Concomitant]
  6. XOPENEX [Concomitant]

REACTIONS (7)
  - ABDOMINAL PAIN [None]
  - ADVERSE EVENT [None]
  - DEPENDENCE [None]
  - DIARRHOEA [None]
  - DRUG INEFFECTIVE [None]
  - DRUG WITHDRAWAL SYNDROME [None]
  - NAUSEA [None]
